FAERS Safety Report 4692942-7 (Version None)
Quarter: 2005Q2

REPORT INFORMATION
  Report Type: 
  Country: None (occurrence: None)
  Receive Date: 20050615
  Receipt Date: 20050525
  Transmission Date: 20051028
  Serious: Yes (Hospitalization)
  Sender: FDA-Public Use
  Company Number: US_0410107460

PATIENT
  Age: 51 Year
  Sex: Female
  Weight: 82 kg

DRUGS (21)
  1. ZYPREXA [Suspect]
     Indication: SCHIZOPHRENIA
     Dosage: 40 MG/1 IN THE EVENING
     Dates: start: 19961102, end: 20040101
  2. SYMBAX [Concomitant]
  3. FLUOXETINE [Concomitant]
  4. GLIPIZIDE [Concomitant]
  5. PREVACID (LANSOPRAZOLE0 [Concomitant]
  6. BUPROPION [Concomitant]
  7. LEXAPRO [Concomitant]
  8. ABILIFY [Concomitant]
  9. CLONIDINE [Concomitant]
  10. DIPHENHYDRAMINE [Concomitant]
  11. NICOTINE DERMAL PATCH (NICOTINE RESIN) [Concomitant]
  12. MAGNESIUM HYDROXIDE TAB [Concomitant]
  13. PANTOPRAZOLE SODIUM [Concomitant]
  14. FOLATE SODIUM [Concomitant]
  15. LEVOFLOXACIN [Concomitant]
  16. SERTRALINE HCL [Concomitant]
  17. RISPERIDONE [Concomitant]
  18. PRILOSEC (OMEPRAZOLE RTIOPHARM0 [Concomitant]
  19. NIXIUM (ESOMEPRAZOLE MAGNESIUM) [Concomitant]
  20. VALPROIC ACID [Concomitant]
  21. DOCUSATE [Concomitant]

REACTIONS (6)
  - BLOOD CHOLESTEROL ABNORMAL [None]
  - CONDITION AGGRAVATED [None]
  - DIABETES MELLITUS [None]
  - HYPERTENSION [None]
  - MAJOR DEPRESSION [None]
  - SCHIZOPHRENIA, PARANOID TYPE [None]
